FAERS Safety Report 9824327 (Version 2)
Quarter: 2014Q1

REPORT INFORMATION
  Report Type: Spontaneous
  Country: US (occurrence: US)
  Receive Date: 20140116
  Receipt Date: 20140116
  Transmission Date: 20141002
  Serious: No
  Sender: FDA-Public Use
  Company Number: US-GILEAD-2011-0039454

PATIENT
  Age: 69 Year
  Sex: Female

DRUGS (19)
  1. LETAIRIS [Suspect]
     Indication: PULMONARY HYPERTENSION
     Route: 048
     Dates: start: 20110223, end: 20110501
  2. PROPAFENONE [Concomitant]
  3. WARFARIN [Concomitant]
  4. LASIX [Concomitant]
  5. METOPROLOL [Concomitant]
  6. AMLODIPINE [Concomitant]
  7. LEVOTHYROXINE [Concomitant]
  8. SIMVASTATIN [Concomitant]
  9. PRILOSEC [Concomitant]
  10. PARACETAMOL/HYDROCODONE BITARTRATE [Concomitant]
  11. AMOXICILLIN [Concomitant]
  12. TRAVATAN [Concomitant]
  13. AZOPT [Concomitant]
  14. KCL [Concomitant]
  15. CENTRUM SILVER [Concomitant]
  16. VITAMIN C [Concomitant]
  17. CALCIUM + D [Concomitant]
  18. VITAMIN D [Concomitant]
  19. FISH OIL [Concomitant]

REACTIONS (1)
  - Dyspnoea [Recovered/Resolved with Sequelae]
